FAERS Safety Report 6680429-1 (Version None)
Quarter: 2010Q2

REPORT INFORMATION
  Report Type: 
  Country: None (occurrence: None)
  Receive Date: 20100414
  Receipt Date: 20100407
  Transmission Date: 20101027
  Serious: Yes (Hospitalization)
  Sender: FDA-Public Use
  Company Number: US-BIOGENIDEC-2010BI004986

PATIENT
  Age: 53 Year
  Sex: Male
  Weight: 124 kg

DRUGS (1)
  1. TYSABRI [Suspect]
     Indication: MULTIPLE SCLEROSIS
     Route: 042
     Dates: start: 20070301

REACTIONS (3)
  - HYPERHIDROSIS [None]
  - MEDICAL DEVICE CHANGE [None]
  - MEDICAL DEVICE IMPLANTATION [None]
